FAERS Safety Report 19268745 (Version 2)
Quarter: 2021Q2

REPORT INFORMATION
  Report Type: Report from Study
  Country: US (occurrence: US)
  Receive Date: 20210518
  Receipt Date: 20210610
  Transmission Date: 20210717
  Serious: No
  Sender: FDA-Public Use
  Company Number: NVSC2021US107349

PATIENT
  Sex: Female

DRUGS (2)
  1. PIQRAY [Suspect]
     Active Substance: ALPELISIB
     Dosage: 250 MG, QD
     Route: 048
  2. PIQRAY [Suspect]
     Active Substance: ALPELISIB
     Indication: BREAST CANCER
     Dosage: 300 MG, QD
     Route: 048

REACTIONS (4)
  - Rhinorrhoea [Recovered/Resolved]
  - Sneezing [Recovered/Resolved]
  - Asthenia [Unknown]
  - Diarrhoea [Recovered/Resolved]
